FAERS Safety Report 21650961 (Version 1)
Quarter: 2022Q4

REPORT INFORMATION
  Report Type: Spontaneous
  Country: US (occurrence: US)
  Receive Date: 20221128
  Receipt Date: 20221128
  Transmission Date: 20230113
  Serious: Yes (Death, Other)
  Sender: FDA-Public Use
  Company Number: US-PFIZER INC-PV202200109163

PATIENT
  Age: 70 Year
  Sex: Male

DRUGS (8)
  1. VORICONAZOLE [Suspect]
     Active Substance: VORICONAZOLE
     Indication: Infectious pleural effusion
     Dosage: UNK
     Route: 042
  2. VORICONAZOLE [Suspect]
     Active Substance: VORICONAZOLE
     Indication: Aspergillus infection
  3. ALTEPLASE [Suspect]
     Active Substance: ALTEPLASE
     Indication: Infectious pleural effusion
     Dosage: 10 MG, 2X/DAY, FOR 3 DAYS
  4. ALTEPLASE [Suspect]
     Active Substance: ALTEPLASE
     Indication: Aspergillus infection
  5. CASPOFUNGIN [Suspect]
     Active Substance: CASPOFUNGIN
     Indication: Infectious pleural effusion
     Dosage: UNK
     Route: 042
  6. CASPOFUNGIN [Suspect]
     Active Substance: CASPOFUNGIN
     Indication: Aspergillus infection
  7. DORNASE ALFA [Suspect]
     Active Substance: DORNASE ALFA
     Indication: Infectious pleural effusion
     Dosage: 5 MG, 2X/DAY, FOR 3 DAYS
  8. DORNASE ALFA [Suspect]
     Active Substance: DORNASE ALFA
     Indication: Aspergillus infection

REACTIONS (1)
  - Drug ineffective [Fatal]
